FAERS Safety Report 10103102 (Version 3)
Quarter: 2014Q2

REPORT INFORMATION
  Report Type: Spontaneous
  Country: US (occurrence: US)
  Receive Date: 20140424
  Receipt Date: 20140521
  Transmission Date: 20141212
  Serious: Yes (Disabling, Other)
  Sender: FDA-Public Use
  Company Number: US-GLAXOSMITHKLINE-A1069787A

PATIENT
  Age: 77 Year
  Sex: Male
  Weight: 68.2 kg

DRUGS (3)
  1. ADVAIR HFA [Suspect]
     Indication: ASTHMA
     Dosage: 1PUFF TWICE PER DAY
     Route: 055
     Dates: start: 2011
  2. VENTOLIN [Suspect]
     Indication: ASTHMA
     Route: 055
     Dates: start: 2011
  3. NO CONCURRENT MEDICATION [Concomitant]

REACTIONS (5)
  - Condition aggravated [Recovered/Resolved]
  - Asthma exercise induced [Recovered/Resolved]
  - Inhalation therapy [Unknown]
  - Drug ineffective [Unknown]
  - Product quality issue [Unknown]
